FAERS Safety Report 11520736 (Version 1)
Quarter: 2015Q3

REPORT INFORMATION
  Report Type: Spontaneous
  Country: IT (occurrence: IT)
  Receive Date: 20150918
  Receipt Date: 20150918
  Transmission Date: 20151125
  Serious: Yes (Hospitalization, Other)
  Sender: FDA-Public Use
  Company Number: IT-ELI_LILLY_AND_COMPANY-IT201509002215

PATIENT
  Age: 65 Year
  Sex: Female

DRUGS (17)
  1. EUTIROX [Interacting]
     Active Substance: LEVOTHYROXINE SODIUM
     Indication: HYPOTHYROIDISM
     Dosage: UNK, UNKNOWN
     Route: 065
  2. LOSARTAN POTASSIUM. [Concomitant]
     Active Substance: LOSARTAN POTASSIUM
     Dosage: 1 DF, QD
     Route: 065
     Dates: start: 20150525
  3. CYMBALTA [Suspect]
     Active Substance: DULOXETINE HYDROCHLORIDE
     Indication: PRODUCT USED FOR UNKNOWN INDICATION
     Dosage: UNK, UNKNOWN
     Route: 065
  4. ALLOPURINOL. [Concomitant]
     Active Substance: ALLOPURINOL
     Indication: PRODUCT USED FOR UNKNOWN INDICATION
     Dosage: UNK, UNKNOWN
     Route: 065
  5. CYMBALTA [Interacting]
     Active Substance: DULOXETINE HYDROCHLORIDE
     Dosage: 60 MG, QD
     Route: 065
     Dates: start: 20150525
  6. FUROSEMIDE. [Interacting]
     Active Substance: FUROSEMIDE
     Indication: PRODUCT USED FOR UNKNOWN INDICATION
     Dosage: UNK, UNKNOWN
     Route: 065
  7. LAROXYL [Interacting]
     Active Substance: AMITRIPTYLINE
     Indication: PRODUCT USED FOR UNKNOWN INDICATION
     Dosage: UNK, UNKNOWN
     Route: 065
  8. COUMADIN [Interacting]
     Active Substance: WARFARIN SODIUM
     Indication: ATRIAL FIBRILLATION
     Dosage: UNK, UNKNOWN
     Route: 065
  9. COUMADIN [Interacting]
     Active Substance: WARFARIN SODIUM
     Dosage: 2 DF, QD
     Route: 065
     Dates: start: 20150525
  10. PLAQUENIL [Concomitant]
     Active Substance: HYDROXYCHLOROQUINE SULFATE
     Dosage: 1 DF, QOD
     Route: 065
     Dates: start: 20150525
  11. ALLOPURINOL. [Concomitant]
     Active Substance: ALLOPURINOL
     Dosage: 300 MG, QD
     Route: 065
     Dates: start: 20150525
  12. FUROSEMIDE. [Interacting]
     Active Substance: FUROSEMIDE
     Dosage: 12.5 MG, QD
     Route: 065
     Dates: start: 20150525
  13. SIMVASTATIN. [Interacting]
     Active Substance: SIMVASTATIN
     Dosage: 20 MG, QD
     Route: 065
     Dates: start: 20150525
  14. LOSARTAN POTASSIUM. [Concomitant]
     Active Substance: LOSARTAN POTASSIUM
     Indication: PRODUCT USED FOR UNKNOWN INDICATION
     Dosage: UNK, UNKNOWN
     Route: 065
  15. SIMVASTATIN. [Interacting]
     Active Substance: SIMVASTATIN
     Indication: PRODUCT USED FOR UNKNOWN INDICATION
     Dosage: UNK, UNKNOWN
     Route: 065
  16. EUTIROX [Interacting]
     Active Substance: LEVOTHYROXINE SODIUM
     Dosage: 25 UG, QD
     Route: 065
     Dates: start: 20150525
  17. PLAQUENIL [Concomitant]
     Active Substance: HYDROXYCHLOROQUINE SULFATE
     Indication: RHEUMATOID ARTHRITIS
     Dosage: UNK, UNKNOWN
     Route: 065

REACTIONS (11)
  - Blood magnesium decreased [Unknown]
  - Diarrhoea [Recovering/Resolving]
  - Dehydration [Recovering/Resolving]
  - Apraxia [Unknown]
  - International normalised ratio increased [Unknown]
  - Asthenia [Unknown]
  - Drug interaction [Recovering/Resolving]
  - White blood cell count increased [Unknown]
  - Hyponatraemia [Recovering/Resolving]
  - Syncope [Recovering/Resolving]
  - Vertigo [Recovering/Resolving]

NARRATIVE: CASE EVENT DATE: 201505
